FAERS Safety Report 21432321 (Version 1)
Quarter: 2022Q4

REPORT INFORMATION
  Report Type: Spontaneous
  Country: US (occurrence: US)
  Receive Date: 20221009
  Receipt Date: 20221009
  Transmission Date: 20230113
  Serious: No
  Sender: FDA-Public Use
  Company Number: US-drreddys-SPO/USA/22/0154753

PATIENT
  Age: 16 Year
  Sex: Female

DRUGS (1)
  1. ZENATANE [Suspect]
     Active Substance: ISOTRETINOIN
     Indication: Acne
     Dosage: RMA ISSUE DATE: 28 FEBRUARY 2022 10:58:37 AM, 30 MARCH 2022 04:27:22 PM, 06 MAY 2022 02:15:11 PM, 08

REACTIONS (1)
  - Urticaria [Unknown]
